FAERS Safety Report 18673914 (Version 1)
Quarter: 2020Q4

REPORT INFORMATION
  Report Type: Report from Study
  Country: None (occurrence: RO)
  Receive Date: 20201228
  Receipt Date: 20201228
  Transmission Date: 20210114
  Serious: Yes (Death)
  Sender: FDA-Public Use
  Company Number: RO-ABBVIE-20P-135-3679026-00

PATIENT
  Age: 64 Year
  Sex: Female
  Weight: 75 kg

DRUGS (10)
  1. ASPATOFORT [Concomitant]
     Active Substance: PYRIDOXINE HYDROCHLORIDE\SODIUM ASPARTATE
     Indication: LIVER DISORDER
     Route: 042
     Dates: start: 20201104, end: 20201126
  2. ACICLOVIRUM [Concomitant]
     Indication: INFECTION PROPHYLAXIS
  3. VORICONAZOLUM [Concomitant]
     Indication: INFECTION PROPHYLAXIS
  4. MABRON [Concomitant]
     Indication: ANALGESIC THERAPY
     Route: 042
     Dates: start: 20201103, end: 20201126
  5. VENETOCLAX. [Suspect]
     Active Substance: VENETOCLAX
     Indication: ACUTE MYELOID LEUKAEMIA
     Route: 048
     Dates: start: 20200904, end: 20201127
  6. RAMIPRILUM [Concomitant]
     Indication: HYPERTENSION
  7. METOCLOPRAMID [Concomitant]
     Active Substance: METOCLOPRAMIDE
     Indication: PROPHYLAXIS OF NAUSEA AND VOMITING
     Route: 042
     Dates: start: 20201116, end: 20201126
  8. LEVOFLOXACINUM [Concomitant]
     Active Substance: LEVOFLOXACIN
     Indication: INFECTION PROPHYLAXIS
  9. POTASSIUM CHLORIDE. [Concomitant]
     Active Substance: POTASSIUM CHLORIDE
     Indication: HYPOKALAEMIA
  10. GLUCOPHAGE [Concomitant]
     Active Substance: METFORMIN HYDROCHLORIDE
     Indication: DIABETES MELLITUS

REACTIONS (8)
  - Respiratory failure [Fatal]
  - Blood fibrinogen abnormal [Fatal]
  - Sepsis [Fatal]
  - Breath sounds abnormal [Fatal]
  - C-reactive protein abnormal [Fatal]
  - Procalcitonin abnormal [Fatal]
  - Pneumonia [Fatal]
  - Malaise [Fatal]

NARRATIVE: CASE EVENT DATE: 20201113
